FAERS Safety Report 23841176 (Version 1)
Quarter: 2024Q2

REPORT INFORMATION
  Report Type: Spontaneous
  Country: US (occurrence: US)
  Receive Date: 20240510
  Receipt Date: 20240510
  Transmission Date: 20240716
  Serious: No
  Sender: FDA-Public Use
  Company Number: US-AMGEN-USASP2024091986

PATIENT
  Age: 53 Year
  Sex: Male

DRUGS (1)
  1. VECTIBIX [Suspect]
     Active Substance: PANITUMUMAB
     Indication: Colon cancer
     Dosage: 500 MILLIGRAM, (1) VECTIBIX 400MG VIAL AND (1) VECTIBIX 100MG VIAL
     Route: 065

REACTIONS (1)
  - Rash [Unknown]

NARRATIVE: CASE EVENT DATE: 20240405
